FAERS Safety Report 25925139 (Version 1)
Quarter: 2025Q4

REPORT INFORMATION
  Report Type: Spontaneous
  Country: US (occurrence: None)
  Receive Date: 20251013
  Receipt Date: 20251013
  Transmission Date: 20260117
  Serious: Yes (Other)
  Sender: FDA-CTU
  Company Number: None

PATIENT
  Age: 47 Year
  Sex: Female
  Weight: 57.6 kg

DRUGS (5)
  1. PAROXETINE [Suspect]
     Active Substance: PAROXETINE
     Indication: Anxiety
     Dates: start: 20030330, end: 20230730
  2. PAROXETINE [Suspect]
     Active Substance: PAROXETINE
     Indication: Migraine
  3. VITAMINS [Concomitant]
     Active Substance: VITAMINS
  4. VITAMIN C [Concomitant]
     Active Substance: ASCORBIC ACID
  5. MAGNESIUM [Concomitant]
     Active Substance: MAGNESIUM

REACTIONS (10)
  - Withdrawal syndrome [None]
  - Hallucination, auditory [None]
  - Akathisia [None]
  - Vertigo [None]
  - Nausea [None]
  - Vomiting [None]
  - Diarrhoea [None]
  - Insomnia [None]
  - Panic reaction [None]
  - Myalgia [None]

NARRATIVE: CASE EVENT DATE: 20200815
